FAERS Safety Report 26191939 (Version 1)
Quarter: 2025Q4

REPORT INFORMATION
  Report Type: Spontaneous
  Country: EU (occurrence: EU)
  Receive Date: 20251223
  Receipt Date: 20251223
  Transmission Date: 20260118
  Serious: Yes (Other)
  Sender: ROCHE
  Company Number: EU-ROCHE-10000465436

PATIENT
  Age: 42 Year

DRUGS (4)
  1. CELLCEPT [Suspect]
     Active Substance: MYCOPHENOLATE MOFETIL
     Indication: Lupus nephritis
  2. CORTISONE [Concomitant]
     Active Substance: CORTISONE
  3. TELMISARTAN [Concomitant]
     Active Substance: TELMISARTAN
  4. BELIMUMAB [Concomitant]
     Active Substance: BELIMUMAB

REACTIONS (1)
  - Lupus nephritis [Unknown]

NARRATIVE: CASE EVENT DATE: 20241001
